FAERS Safety Report 7554493-1 (Version None)
Quarter: 2011Q2

REPORT INFORMATION
  Report Type: 
  Country: None (occurrence: None)
  Receive Date: 20110617
  Receipt Date: 20110607
  Transmission Date: 20111010
  Serious: Yes (Life-Threatening, Hospitalization)
  Sender: FDA-Public Use
  Company Number: B0714695A

PATIENT
  Age: 41 Year
  Sex: Male

DRUGS (6)
  1. RITUXAN [Suspect]
     Indication: MANTLE CELL LYMPHOMA
     Route: 042
     Dates: start: 20110322, end: 20110322
  2. ONDANSERTRON HYDROCHLORIDE [Suspect]
     Route: 042
     Dates: start: 20110322, end: 20110324
  3. PRIMPERAN TAB [Concomitant]
     Route: 065
  4. CISPLATIN [Suspect]
     Indication: MANTLE CELL LYMPHOMA
     Route: 042
     Dates: start: 20110322, end: 20110323
  5. CYTARABINE [Suspect]
     Indication: MANTLE CELL LYMPHOMA
     Route: 042
     Dates: start: 20110323, end: 20110323
  6. DEXAMETHASONE [Concomitant]
     Route: 065

REACTIONS (6)
  - HYPOKALAEMIA [None]
  - RENAL TUBULAR NECROSIS [None]
  - CARDIOGENIC SHOCK [None]
  - RENAL FAILURE ACUTE [None]
  - ATRIAL FIBRILLATION [None]
  - VENTRICULAR TACHYCARDIA [None]
